FAERS Safety Report 5957435-5 (Version None)
Quarter: 2008Q4

REPORT INFORMATION
  Report Type: 
  Country: None (occurrence: None)
  Receive Date: 20081114
  Receipt Date: 20081106
  Transmission Date: 20090506
  Serious: Yes (Hospitalization)
  Sender: FDA-Public Use
  Company Number: 036398

PATIENT
  Age: 76 Year
  Sex: Female
  Weight: 65.8 kg

DRUGS (4)
  1. AZITHROMYCIN [Suspect]
     Indication: BRONCHITIS
     Dosage: DOSE PACK, ORAL
     Route: 048
     Dates: start: 20081015, end: 20081016
  2. THYROID TAB [Concomitant]
  3. MICARDIS [Concomitant]
  4. VITAMINS [Concomitant]

REACTIONS (10)
  - ABDOMINAL DISTENSION [None]
  - ABDOMINAL PAIN UPPER [None]
  - ASTHENIA [None]
  - CHILLS [None]
  - DYSGEUSIA [None]
  - ERUCTATION [None]
  - HEADACHE [None]
  - HYPERSOMNIA [None]
  - NAUSEA [None]
  - OVERDOSE [None]
